FAERS Safety Report 6670608-1 (Version None)
Quarter: 2010Q2

REPORT INFORMATION
  Report Type: 
  Country: None (occurrence: None)
  Receive Date: 20100407
  Receipt Date: 20100329
  Transmission Date: 20101027
  Serious: Yes (Disabling)
  Sender: FDA-Public Use
  Company Number: DE-JNJFOC-20100305194

PATIENT
  Age: 41 Year
  Sex: Female

DRUGS (7)
  1. TAVANIC [Suspect]
     Indication: SUPERINFECTION BACTERIAL
     Route: 048
  2. TAVANIC [Suspect]
     Indication: BRONCHITIS
     Route: 048
  3. TAVANIC [Suspect]
     Indication: INFLUENZA
     Route: 048
  4. TAVANIC [Suspect]
     Indication: UPPER RESPIRATORY TRACT INFECTION
     Route: 048
  5. TAVANIC [Suspect]
     Indication: PLEURISY
     Route: 048
  6. PIRACETAM [Concomitant]
     Indication: MUSCLE SPASMS
     Route: 065
  7. LIMPTAR [Concomitant]
     Indication: MUSCLE TIGHTNESS
     Route: 065

REACTIONS (6)
  - MOTOR DYSFUNCTION [None]
  - MUSCULOSKELETAL CHEST PAIN [None]
  - MYALGIA [None]
  - SENSORY DISTURBANCE [None]
  - SOFT TISSUE INJURY [None]
  - TENDON PAIN [None]
